FAERS Safety Report 18799452 (Version 1)
Quarter: 2021Q1

REPORT INFORMATION
  Report Type: Spontaneous
  Country: GB (occurrence: GB)
  Receive Date: 20210128
  Receipt Date: 20210128
  Transmission Date: 20210419
  Serious: Yes (Hospitalization, Other)
  Sender: FDA-Public Use
  Company Number: GB-PFIZER INC-2020217811

PATIENT
  Age: 73 Year
  Sex: Male

DRUGS (1)
  1. GENOTROPIN [Suspect]
     Active Substance: SOMATROPIN
     Indication: GROWTH HORMONE DEFICIENCY
     Dosage: 0.6 MG, DAILY
     Route: 058

REACTIONS (6)
  - Inappropriate schedule of product administration [Unknown]
  - Addison^s disease [Unknown]
  - Sepsis [Unknown]
  - Immunodeficiency [Unknown]
  - Diabetes mellitus [Unknown]
  - Brain neoplasm [Unknown]
